FAERS Safety Report 25013683 (Version 3)
Quarter: 2025Q1

REPORT INFORMATION
  Report Type: Spontaneous
  Country: DE (occurrence: DE)
  Receive Date: 20250226
  Receipt Date: 20250315
  Transmission Date: 20250409
  Serious: Yes (Hospitalization, Other)
  Sender: NOVARTIS
  Company Number: DE-002147023-NVSC2025DE029461

PATIENT
  Sex: Female
  Weight: 52 kg

DRUGS (1)
  1. SCEMBLIX [Suspect]
     Active Substance: ASCIMINIB HYDROCHLORIDE
     Indication: Product used for unknown indication
     Dosage: 40 MG, BID
     Route: 065
     Dates: start: 202209

REACTIONS (10)
  - Influenza [Unknown]
  - Pulmonary oedema [Unknown]
  - Renal impairment [Unknown]
  - Pyrexia [Unknown]
  - Hypotension [Unknown]
  - Heart rate increased [Unknown]
  - White blood cell count increased [Unknown]
  - Decreased appetite [Unknown]
  - Weight decreased [Unknown]
  - Constipation [Unknown]

NARRATIVE: CASE EVENT DATE: 20240101
